FAERS Safety Report 7379761-8 (Version None)
Quarter: 2011Q1

REPORT INFORMATION
  Report Type: 
  Country: None (occurrence: None)
  Receive Date: 20110318
  Receipt Date: 20110307
  Transmission Date: 20110831
  Serious: Yes (Hospitalization)
  Sender: FDA-Public Use
  Company Number: CLCY20110023

PATIENT
  Age: 74 Year
  Sex: Male
  Weight: 122.4712 kg

DRUGS (6)
  1. METFORMIN [Concomitant]
  2. GLIPIZIDE [Concomitant]
  3. DIGOXIN [Concomitant]
  4. COLCYRS 0.6 MG [Suspect]
     Indication: GOUT
     Dosage: 0.6 MG, 1 IN 1 D, PER ORAL
     Route: 048
     Dates: start: 20101231, end: 20110103
  5. RELAFEN [Concomitant]
  6. BENICAR [Concomitant]

REACTIONS (6)
  - DIARRHOEA [None]
  - RENAL DISORDER [None]
  - CONFUSIONAL STATE [None]
  - SWELLING [None]
  - DEHYDRATION [None]
  - BLADDER DISORDER [None]
